FAERS Safety Report 22066821 (Version 1)
Quarter: 2023Q1

REPORT INFORMATION
  Report Type: Spontaneous
  Country: RU (occurrence: None)
  Receive Date: 20230306
  Receipt Date: 20230306
  Transmission Date: 20230417
  Serious: Yes (Other)
  Sender: FDA-Public Use
  Company Number: 2023A052293

PATIENT
  Age: 42 Year
  Sex: Female
  Weight: 57 kg

DRUGS (4)
  1. PULMICORT TURBUHALER [Suspect]
     Active Substance: BUDESONIDE
     Indication: Pertussis
     Dosage: 0.5ARB UNIT TWO TIMES A DAY
     Route: 055
     Dates: start: 2019
  2. PRENOXDIAZINE HYDROCHLORIDE [Concomitant]
     Active Substance: PRENOXDIAZINE HYDROCHLORIDE
  3. CODELAC [Concomitant]
  4. FENOTEROL HYDROBROMIDE\IPRATROPIUM BROMIDE [Concomitant]
     Active Substance: FENOTEROL HYDROBROMIDE\IPRATROPIUM BROMIDE

REACTIONS (2)
  - Condition aggravated [Recovered/Resolved]
  - Off label use [Recovered/Resolved]
